FAERS Safety Report 5073963-1 (Version None)
Quarter: 2006Q3

REPORT INFORMATION
  Report Type: 
  Country: None (occurrence: None)
  Receive Date: 20060808
  Receipt Date: 20060720
  Transmission Date: 20061208
  Serious: Yes (Death, Other)
  Sender: FDA-Public Use
  Company Number: PHEH2006US09425

PATIENT
  Age: 64 Year
  Sex: Female

DRUGS (9)
  1. ZOMETA [Suspect]
     Indication: METASTASES TO BONE
     Dosage: 4MG Q4WK
     Dates: start: 20031217, end: 20041213
  2. ADRIAMYCIN PFS [Concomitant]
     Indication: BREAST CANCER
     Dosage: 100MG Q3WK
     Route: 042
     Dates: start: 20000824, end: 20001027
  3. CYTOXAN [Concomitant]
     Indication: BREAST CANCER
     Dosage: 1000MG Q3WK
     Route: 042
     Dates: start: 20000824, end: 20001027
  4. TAXOTERE [Concomitant]
     Indication: BREAST CANCER
     Dosage: 160MG Q3WK
     Dates: start: 20001124, end: 20010126
  5. TAXOTERE [Concomitant]
     Dosage: 60MG WEEKLY X3 Q28D
     Dates: start: 20040209, end: 20040907
  6. XELODA [Concomitant]
     Dosage: 1000MG BID 1WK ON 1WK OFF
     Dates: start: 20040209, end: 20040907
  7. GEMZAR [Concomitant]
     Dosage: 600MG D1,D8 Q21DAYS
     Dates: start: 20050829, end: 20051017
  8. DOXIL [Concomitant]
     Dosage: 70MG Q4WK
     Dates: start: 20050627, end: 20050725
  9. FASLODEX [Concomitant]
     Dosage: 250MG Q4WK

REACTIONS (4)
  - BREAST CANCER METASTATIC [None]
  - DENTAL TREATMENT [None]
  - IMPAIRED HEALING [None]
  - OSTEONECROSIS [None]
